FAERS Safety Report 6694197-0 (Version None)
Quarter: 2010Q2

REPORT INFORMATION
  Report Type: 
  Country: None (occurrence: None)
  Receive Date: 20100423
  Receipt Date: 20100416
  Transmission Date: 20101027
  Serious: Yes (Other)
  Sender: FDA-Public Use
  Company Number: AU-ROCHE-697933

PATIENT
  Sex: Male

DRUGS (1)
  1. PEGASYS [Suspect]
     Indication: DRUG USE FOR UNKNOWN INDICATION
     Route: 065

REACTIONS (5)
  - DYSPNOEA [None]
  - EJECTION FRACTION DECREASED [None]
  - INFLUENZA LIKE ILLNESS [None]
  - LEFT VENTRICULAR DYSFUNCTION [None]
  - SUBENDOCARDIAL ISCHAEMIA [None]
